FAERS Safety Report 8326980-X (Version None)
Quarter: 2012Q2

REPORT INFORMATION
  Report Type: 
  Country: None (occurrence: None)
  Receive Date: 20120501
  Receipt Date: 20111107
  Transmission Date: 20120825
  Serious: No
  Sender: FDA-Public Use
  Company Number: US-SANOFI-AVENTIS-2011SA073320

PATIENT
  Age: 69 Year
  Sex: Male

DRUGS (4)
  1. SOLOSTAR [Concomitant]
     Dates: start: 20060101
  2. SOLOSTAR [Suspect]
     Indication: TYPE 2 DIABETES MELLITUS
     Dosage: START DATE: 6 MONTHS AGO
     Dates: start: 20110501
  3. LANTUS [Concomitant]
     Dosage: START DATE: 5 YEARS AGO
     Dates: start: 20060101
  4. APIDRA [Suspect]
     Indication: TYPE 2 DIABETES MELLITUS
     Dosage: START DATE: 6 MONTHS AGO DOSE:20 UNIT(S)
     Route: 058
     Dates: start: 20110501

REACTIONS (2)
  - PRODUCT LABEL ISSUE [None]
  - BURNING SENSATION [None]
